FAERS Safety Report 7384181-6 (Version None)
Quarter: 2011Q1

REPORT INFORMATION
  Report Type: 
  Country: None (occurrence: None)
  Receive Date: 20110330
  Receipt Date: 20110318
  Transmission Date: 20110831
  Serious: Yes (Other)
  Sender: FDA-Public Use
  Company Number: B0708868A

PATIENT
  Age: 52 Year
  Sex: Male

DRUGS (5)
  1. PAXIL [Suspect]
     Route: 065
     Dates: start: 20020429
  2. METHADONE [Suspect]
     Dosage: 160MG PER DAY
     Route: 048
     Dates: start: 20051012
  3. VARDENAFIL [Suspect]
     Route: 065
     Dates: start: 20071215
  4. RISPERDAL [Suspect]
     Route: 065
     Dates: start: 19991201
  5. EFFEXOR [Suspect]
     Route: 065
     Dates: start: 20060320

REACTIONS (2)
  - DRUG INTERACTION [None]
  - ELECTROCARDIOGRAM QT PROLONGED [None]
